FAERS Safety Report 5506303-1 (Version None)
Quarter: 2007Q4

REPORT INFORMATION
  Report Type: 
  Country: None (occurrence: None)
  Receive Date: 20071102
  Receipt Date: 20071102
  Transmission Date: 20080405
  Serious: Yes (Hospitalization)
  Sender: FDA-Public Use
  Company Number: None

PATIENT
  Sex: Female
  Weight: 29 kg

DRUGS (7)
  1. CYCLOPHOSPHAMIDE [Suspect]
     Dosage: 1500 MG
     Dates: end: 20070927
  2. G-CSF (FILGRASTIM, AMGEN) [Suspect]
     Dosage: 150 MCG
     Dates: end: 20070910
  3. LEUCOVORIN CALCIUM [Suspect]
     Dosage: 60 MG
     Dates: end: 20070925
  4. METHOTREXATE [Suspect]
     Dosage: 8000 MG
     Dates: end: 20070924
  5. PREDNISONE TAB [Suspect]
     Dosage: 150 MG
     Dates: end: 20070110
  6. RITUXIMAB (MOAB C2B8 ANTI CD20, CHIMERIC) [Suspect]
     Dosage: 750 MG
     Dates: end: 20070924
  7. VINCRISTINE SULFATE [Suspect]
     Dosage: 2 MG
     Dates: end: 20070924

REACTIONS (7)
  - ABDOMINAL PAIN [None]
  - ABDOMINAL RIGIDITY [None]
  - CONDITION AGGRAVATED [None]
  - DYSPHAGIA [None]
  - MUCOSAL INFLAMMATION [None]
  - ORAL PAIN [None]
  - PHARYNGOLARYNGEAL PAIN [None]
